FAERS Safety Report 6270912-5 (Version None)
Quarter: 2009Q3

REPORT INFORMATION
  Report Type: 
  Country: None (occurrence: None)
  Receive Date: 20090716
  Receipt Date: 20090706
  Transmission Date: 20100115
  Serious: Yes (Hospitalization, Other)
  Sender: FDA-Public Use
  Company Number: PHHY2009PE27305

PATIENT
  Sex: Female

DRUGS (5)
  1. EXELON [Suspect]
     Dosage: 18 MG
     Route: 062
     Dates: start: 20081101
  2. EUTEROL [Concomitant]
  3. IRRIGOL PLUS [Concomitant]
  4. LOSARTAN POTASSIUM [Concomitant]
  5. GLUCOPHAGE [Concomitant]

REACTIONS (2)
  - KIDNEY INFECTION [None]
  - PNEUMONIA [None]
